FAERS Safety Report 5792718-3 (Version None)
Quarter: 2008Q2

REPORT INFORMATION
  Report Type: 
  Country: None (occurrence: None)
  Receive Date: 20080624
  Receipt Date: 20080615
  Transmission Date: 20081010
  Serious: Yes (Other)
  Sender: FDA-Public Use
  Company Number: CHPA2008US10055

PATIENT
  Age: 62 Year
  Sex: Female

DRUGS (6)
  1. RITEAID PLP (NCH) (NICOINE) TRANS-THERAPEUTIC-SYSTEM [Suspect]
     Indication: SMOKING CESSATION THERAPY
     Dosage: 21 MG, QD, TRANSDERMAL; 14 MG, QD, TRANSDERMAL
     Route: 062
     Dates: start: 20080301
  2. RITEAID PLP (NCH) (NICOINE) TRANS-THERAPEUTIC-SYSTEM [Suspect]
     Indication: SMOKING CESSATION THERAPY
     Dosage: 21 MG, QD, TRANSDERMAL; 14 MG, QD, TRANSDERMAL
     Route: 062
     Dates: start: 20080601
  3. HYDROCHLOROTHIAZIDE [Concomitant]
  4. BENZTROPEINE (BENZTROPEINE) [Concomitant]
  5. LITHIUM CARBONATE [Concomitant]
  6. ^MACLIZINE^ [Concomitant]

REACTIONS (3)
  - ANEURYSM [None]
  - DIZZINESS [None]
  - INAPPROPRIATE SCHEDULE OF DRUG ADMINISTRATION [None]
